FAERS Safety Report 5397056-9 (Version None)
Quarter: 2007Q3

REPORT INFORMATION
  Report Type: 
  Country: None (occurrence: None)
  Receive Date: 20070724
  Receipt Date: 20070717
  Transmission Date: 20080115
  Serious: Yes (Other)
  Sender: FDA-Public Use
  Company Number: 2007SP014370

PATIENT
  Age: 3 Year
  Sex: Male

DRUGS (1)
  1. CLARINEX [Suspect]
     Indication: DRUG USE FOR UNKNOWN INDICATION
     Dosage: 2.5 MG; PO
     Route: 048

REACTIONS (4)
  - ACCIDENTAL DRUG INTAKE BY CHILD [None]
  - OVERDOSE [None]
  - SOMNOLENCE [None]
  - UNRESPONSIVE TO STIMULI [None]
